FAERS Safety Report 22838030 (Version 2)
Quarter: 2023Q4

REPORT INFORMATION
  Report Type: Spontaneous
  Country: US (occurrence: None)
  Receive Date: 20230818
  Receipt Date: 20231106
  Transmission Date: 20240110
  Serious: Yes (Life-Threatening, Hospitalization)
  Sender: FDA-Public Use
  Company Number: US-ROCHE-3406762

PATIENT
  Age: 73 Year
  Sex: Female
  Weight: 31.78 kg

DRUGS (4)
  1. ACTIVASE [Suspect]
     Active Substance: ALTEPLASE
     Indication: Ischaemic stroke
     Route: 042
  2. ACTIVASE [Suspect]
     Active Substance: ALTEPLASE
     Dosage: ONCE
     Route: 042
     Dates: start: 20230724, end: 20230724
  3. OMNIPAQUE [Concomitant]
     Active Substance: IOHEXOL
     Indication: Angiogram
     Dosage: ONCE
     Route: 042
     Dates: start: 20230724, end: 20230724
  4. LABETALOL [Concomitant]
     Active Substance: LABETALOL\LABETALOL HYDROCHLORIDE
     Indication: Hypertension
     Dosage: ONCE
     Route: 042
     Dates: start: 20230724, end: 20230724

REACTIONS (3)
  - Angioedema [Recovered/Resolved]
  - Haemorrhagic transformation stroke [Recovered/Resolved with Sequelae]
  - Pulmonary oedema [Recovered/Resolved with Sequelae]

NARRATIVE: CASE EVENT DATE: 20230724
